FAERS Safety Report 7655441-6 (Version None)
Quarter: 2011Q3

REPORT INFORMATION
  Report Type: 
  Country: None (occurrence: None)
  Receive Date: 20110804
  Receipt Date: 20110722
  Transmission Date: 20111222
  Serious: Yes (Disabling)
  Sender: FDA-Public Use
  Company Number: GB-JNJFOC-20110710337

PATIENT
  Age: 55 Year
  Sex: Female

DRUGS (5)
  1. CARBAMAZEPINE [Suspect]
     Indication: PAIN
     Route: 048
     Dates: start: 20110624, end: 20110625
  2. NAPROXEN [Suspect]
     Indication: PRODUCT USED FOR UNKNOWN INDICATION
  3. CARBAMAZEPINE [Suspect]
     Indication: HEADACHE
     Route: 048
     Dates: start: 20110624, end: 20110625
  4. ACETAMINOPHEN [Suspect]
     Indication: PRODUCT USED FOR UNKNOWN INDICATION
  5. ACETAMINOPHEN [Suspect]

REACTIONS (10)
  - CONFUSIONAL STATE [None]
  - GLOSSODYNIA [None]
  - URINARY RETENTION [None]
  - MUSCULAR WEAKNESS [None]
  - VISUAL IMPAIRMENT [None]
  - DECREASED APPETITE [None]
  - PYREXIA [None]
  - NIGHT SWEATS [None]
  - RASH [None]
  - ABDOMINAL DISCOMFORT [None]
